FAERS Safety Report 12242943 (Version 1)
Quarter: 2016Q2

REPORT INFORMATION
  Report Type: Report from Study
  Country: US (occurrence: US)
  Receive Date: 20160406
  Receipt Date: 20160406
  Transmission Date: 20160815
  Serious: No
  Sender: FDA-Public Use
  Company Number: GXBR2016US000904

PATIENT
  Age: 46 Year
  Sex: Female

DRUGS (2)
  1. ANTIEPILEPTICS [Concomitant]
     Active Substance: UNSPECIFIED INGREDIENT
     Indication: CONVULSION PROPHYLAXIS
     Dosage: UNK DF, UNK
     Route: 065
  2. GLATOPA [Suspect]
     Active Substance: GLATIRAMER ACETATE
     Indication: MULTIPLE SCLEROSIS
     Dosage: 20 MG, QD
     Route: 065
     Dates: start: 20151022

REACTIONS (3)
  - Injection site pain [Not Recovered/Not Resolved]
  - Skin discolouration [Not Recovered/Not Resolved]
  - Medical device site bruise [Not Recovered/Not Resolved]

NARRATIVE: CASE EVENT DATE: 20160105
